FAERS Safety Report 26184530 (Version 1)
Quarter: 2025Q4

REPORT INFORMATION
  Report Type: Spontaneous
  Country: US (occurrence: US)
  Receive Date: 20251222
  Receipt Date: 20251222
  Transmission Date: 20260118
  Serious: No
  Sender: CELLTRION
  Company Number: US-CELLTRION INC.-2025US016984

PATIENT

DRUGS (1)
  1. TRUXIMA [Suspect]
     Active Substance: RITUXIMAB-ABBS
     Indication: Product used for unknown indication

REACTIONS (5)
  - Joint dislocation [Unknown]
  - Unevaluable event [Unknown]
  - Accident at work [Unknown]
  - Loss of personal independence in daily activities [Unknown]
  - Product dose omission issue [Unknown]
